FAERS Safety Report 21375476 (Version 2)
Quarter: 2022Q4

REPORT INFORMATION
  Report Type: Spontaneous
  Country: CA (occurrence: CA)
  Receive Date: 20220926
  Receipt Date: 20221003
  Transmission Date: 20230113
  Serious: No
  Sender: FDA-Public Use
  Company Number: CA-PFIZER INC-PV202200055644

PATIENT
  Age: 25 Year
  Sex: Female
  Weight: 63.492 kg

DRUGS (1)
  1. DEPO-PROVERA [Suspect]
     Active Substance: MEDROXYPROGESTERONE ACETATE
     Dosage: 1 DF, SINGLE

REACTIONS (2)
  - Device difficult to use [Unknown]
  - Device mechanical issue [Unknown]
